FAERS Safety Report 6660528-0 (Version None)
Quarter: 2010Q1

REPORT INFORMATION
  Report Type: 
  Country: None (occurrence: None)
  Receive Date: 20100331
  Receipt Date: 20100325
  Transmission Date: 20100710
  Serious: Yes (Death, Life-Threatening, Hospitalization, Other)
  Sender: FDA-Public Use
  Company Number: PHHY2009BR29107

PATIENT
  Sex: Male

DRUGS (9)
  1. DICLOFENAC SODIUM [Suspect]
     Indication: ARTHRALGIA
     Dosage: UNK
     Route: 048
  2. EXELON [Suspect]
     Dosage: 3 MG, BID
     Route: 048
     Dates: start: 20090201
  3. CAPTOPRIL [Concomitant]
     Indication: HYPERTENSION
     Dosage: 2 DF, Q12H
     Route: 048
  4. HYDROCHLOROTHIAZIDE [Concomitant]
     Indication: HYPERTENSION
     Dosage: 1 DF, QD
     Route: 048
  5. NIFEDIPINE [Concomitant]
     Indication: HYPERTENSION
     Route: 048
  6. ATENSINA [Concomitant]
     Indication: HYPERTENSION
     Dosage: 1 DF, Q12H
     Route: 048
  7. CITALOPRAM HYDROBROMIDE [Concomitant]
     Dosage: 1 DF, QD
  8. RISPERIDONE [Concomitant]
     Dosage: 1 DF, QD
     Route: 048
     Dates: start: 20090612
  9. TYLENOL-500 [Concomitant]
     Dosage: UNK

REACTIONS (9)
  - ANAEMIA [None]
  - ANXIETY [None]
  - DYSPNOEA [None]
  - FAECAL INCONTINENCE [None]
  - GASTRIC HAEMORRHAGE [None]
  - GASTROINTESTINAL ULCER [None]
  - HAEMATEMESIS [None]
  - HYPERTENSION [None]
  - INFARCTION [None]
